FAERS Safety Report 11595956 (Version 2)
Quarter: 2015Q4

REPORT INFORMATION
  Report Type: Spontaneous
  Country: US (occurrence: US)
  Receive Date: 20151006
  Receipt Date: 20151015
  Transmission Date: 20160304
  Serious: No
  Sender: FDA-Public Use
  Company Number: US-TAKEDA-2015MPI006366

PATIENT
  Sex: Male

DRUGS (1)
  1. VELCADE [Suspect]
     Active Substance: BORTEZOMIB
     Indication: LYMPHOMA
     Dosage: 2 MG, 1/WEEK
     Route: 058
     Dates: start: 20130627

REACTIONS (2)
  - Off label use [Unknown]
  - Herpes zoster [Unknown]
